FAERS Safety Report 9989640 (Version 1)
Quarter: 2014Q1

REPORT INFORMATION
  Report Type: Report from Study
  Country: US (occurrence: US)
  Receive Date: 20140310
  Receipt Date: 20140310
  Transmission Date: 20141002
  Serious: No
  Sender: FDA-Public Use
  Company Number: US-ABBVIE-13P-163-1133665-00

PATIENT
  Age: 60 Year
  Sex: Female

DRUGS (12)
  1. HUMIRA [Suspect]
     Indication: CROHN^S DISEASE
     Dates: start: 20130715
  2. HUMIRA [Suspect]
     Dates: start: 20130729
  3. HUMIRA [Suspect]
     Dates: start: 20130812
  4. DICYCLOMINE [Suspect]
     Indication: PRODUCT USED FOR UNKNOWN INDICATION
  5. ELMIRON [Concomitant]
     Indication: PRODUCT USED FOR UNKNOWN INDICATION
  6. NORTRIPTYLINE [Concomitant]
     Indication: PRODUCT USED FOR UNKNOWN INDICATION
  7. DIAZEPAM [Concomitant]
     Indication: PRODUCT USED FOR UNKNOWN INDICATION
  8. ALPRAZOLAM [Concomitant]
     Indication: CYSTITIS INTERSTITIAL
  9. NITROFURANTOIN [Concomitant]
     Indication: CYSTITIS INTERSTITIAL
  10. INDERAL [Concomitant]
     Indication: MITRAL VALVE PROLAPSE
  11. ESTRIN G [Concomitant]
     Indication: HORMONE REPLACEMENT THERAPY
  12. POTASSIUM [Concomitant]
     Indication: SUPPLEMENTATION THERAPY

REACTIONS (9)
  - Constipation [Unknown]
  - Chest pain [Not Recovered/Not Resolved]
  - Drug effect incomplete [Not Recovered/Not Resolved]
  - Alopecia [Unknown]
  - Oedema peripheral [Not Recovered/Not Resolved]
  - Crohn^s disease [Unknown]
  - Chest pain [Unknown]
  - Nausea [Unknown]
  - Vision blurred [Unknown]
